FAERS Safety Report 4699951-2 (Version None)
Quarter: 2005Q2

REPORT INFORMATION
  Report Type: 
  Country: None (occurrence: None)
  Receive Date: 20050627
  Receipt Date: 20010626
  Transmission Date: 20051028
  Serious: Yes (Hospitalization)
  Sender: FDA-Public Use
  Company Number: FR-BOEHRINGER INGELHEIM PHARMACEUTICALS, INC.-2001-FF-S0412

PATIENT
  Sex: Female
  Weight: 3 kg

DRUGS (13)
  1. VIRAMUNE [Suspect]
     Indication: VERTICAL INFECTION TRANSMISSION
     Route: 048
     Dates: start: 20000318, end: 20000318
  2. VIRAMUNE [Suspect]
     Route: 015
     Dates: start: 20000316, end: 20000316
  3. VIDEX [Suspect]
     Indication: VERTICAL INFECTION TRANSMISSION
     Route: 048
     Dates: start: 20000316, end: 20000427
  4. VIDEX [Suspect]
     Indication: HIV INFECTION
     Route: 015
     Dates: end: 20000316
  5. CRIXIVAN [Suspect]
     Indication: HIV INFECTION
     Route: 015
     Dates: end: 20000316
  6. ZIAGEN [Suspect]
     Indication: HIV INFECTION
     Route: 015
     Dates: end: 20000316
  7. NORVIR [Suspect]
     Indication: HIV INFECTION
     Route: 015
     Dates: end: 20000316
  8. COLPOSEPTINE [Concomitant]
     Route: 015
  9. VITAMINS [Concomitant]
     Route: 015
  10. AUGMENTIN '125' [Concomitant]
     Route: 015
  11. IRON [Concomitant]
     Route: 015
  12. GYNOPEVARYL [Concomitant]
     Route: 015
  13. POLYGYNAX [Concomitant]
     Route: 015

REACTIONS (10)
  - ANAEMIA [None]
  - ANAEMIA NEONATAL [None]
  - BLOOD LACTIC ACID INCREASED [None]
  - DRUG EXPOSURE DURING PREGNANCY [None]
  - HYPERTRIGLYCERIDAEMIA [None]
  - MICROCYTOSIS [None]
  - NEUTROPENIA [None]
  - NEUTROPENIA NEONATAL [None]
  - SPEECH DISORDER DEVELOPMENTAL [None]
  - THALASSAEMIA BETA [None]
